FAERS Safety Report 12743574 (Version 1)
Quarter: 2016Q3

REPORT INFORMATION
  Report Type: Report from Study
  Country: US (occurrence: US)
  Receive Date: 20160914
  Receipt Date: 20160914
  Transmission Date: 20161109
  Serious: Yes (Hospitalization)
  Sender: FDA-Public Use
  Company Number: US-BAYER-2016-174716

PATIENT
  Age: 68 Year
  Sex: Male

DRUGS (6)
  1. STIVARGA [Suspect]
     Active Substance: REGORAFENIB
     Indication: HEPATOCELLULAR CARCINOMA
     Dosage: 160 MG, QD AT THE SAME TIME EACH DAY WITH A LOW FAT BREAKFAST FOR 21 DAYS EVERY MONTH
     Route: 048
     Dates: start: 20160810, end: 20160830
  2. LORAZEPAM. [Concomitant]
     Active Substance: LORAZEPAM
  3. PANTOPRAZOLE [Concomitant]
     Active Substance: PANTOPRAZOLE SODIUM
  4. ONDANSETRON [Concomitant]
     Active Substance: ONDANSETRON
  5. METOPROLOL. [Concomitant]
     Active Substance: METOPROLOL
  6. RAMIPRIL. [Concomitant]
     Active Substance: RAMIPRIL

REACTIONS (4)
  - Off label use [None]
  - Vomiting [Recovered/Resolved]
  - Nausea [Recovered/Resolved]
  - Dehydration [None]

NARRATIVE: CASE EVENT DATE: 20160810
